FAERS Safety Report 5465146-8 (Version None)
Quarter: 2007Q3

REPORT INFORMATION
  Report Type: 
  Country: None (occurrence: None)
  Receive Date: 20070820
  Receipt Date: 20070514
  Transmission Date: 20080115
  Serious: No
  Sender: FDA-Public Use
  Company Number: WAES 0705USA02684

PATIENT
  Age: 70 Year
  Sex: Male

DRUGS (6)
  1. JANUVIA [Suspect]
     Indication: BLOOD GLUCOSE
     Dosage: 100 MG/DAILY/PO
     Route: 048
  2. ACTOS [Concomitant]
  3. COZAAR [Concomitant]
  4. LOTREL [Concomitant]
  5. REQUIP [Concomitant]
  6. VYTORIN [Concomitant]

REACTIONS (2)
  - LIP DRY [None]
  - ORAL DISCOMFORT [None]
